FAERS Safety Report 12876012 (Version 2)
Quarter: 2018Q2

REPORT INFORMATION
  Report Type: Spontaneous
  Country: US (occurrence: US)
  Receive Date: 20161024
  Receipt Date: 20180503
  Transmission Date: 20180711
  Serious: No
  Sender: FDA-Public Use
  Company Number: US-JAZZ-2016-US-015348

PATIENT
  Age: 28 Year
  Sex: Female

DRUGS (29)
  1. XYREM [Suspect]
     Active Substance: SODIUM OXYBATE
     Indication: NARCOLEPSY
     Dosage: 3 G, BID
     Route: 048
     Dates: start: 201306, end: 201307
  2. RANITIDINE. [Concomitant]
     Active Substance: RANITIDINE
  3. PROZAC [Concomitant]
     Active Substance: FLUOXETINE HYDROCHLORIDE
  4. MOBIC [Concomitant]
     Active Substance: MELOXICAM
  5. SUMATRIPTAN SUCCINATE. [Concomitant]
     Active Substance: SUMATRIPTAN SUCCINATE
  6. LYRICA [Concomitant]
     Active Substance: PREGABALIN
  7. PEPCID [Concomitant]
     Active Substance: FAMOTIDINE
  8. OMEPRAZOLE DR [Concomitant]
     Active Substance: OMEPRAZOLE
  9. PROMETHAZINE [Concomitant]
     Active Substance: PROMETHAZINE\PROMETHAZINE HYDROCHLORIDE
  10. XYREM [Suspect]
     Active Substance: SODIUM OXYBATE
     Indication: CATAPLEXY
     Dosage: DOSE ADJUSTMENTS
     Route: 048
     Dates: start: 201307, end: 201502
  11. FISH OIL CONCENTRATE [Concomitant]
     Active Substance: FISH OIL
  12. AMITIZA [Concomitant]
     Active Substance: LUBIPROSTONE
  13. CALCIUM +D [Concomitant]
     Active Substance: CALCIUM\VITAMIN D
  14. ADDERALL [Concomitant]
     Active Substance: AMPHETAMINE ASPARTATE\AMPHETAMINE SULFATE\DEXTROAMPHETAMINE SACCHARATE\DEXTROAMPHETAMINE SULFATE
  15. MICROGESTIN FE [Concomitant]
     Active Substance: ETHINYL ESTRADIOL\FERROUS FUMARATE\NORETHINDRONE ACETATE
  16. CYCLOBENZAPRINE. [Concomitant]
     Active Substance: CYCLOBENZAPRINE
  17. TRAMADOL HCL [Concomitant]
     Active Substance: TRAMADOL HYDROCHLORIDE
  18. PREVACID [Concomitant]
     Active Substance: LANSOPRAZOLE
  19. VOLTAREN [Concomitant]
     Active Substance: DICLOFENAC SODIUM
  20. GABAPENTIN. [Concomitant]
     Active Substance: GABAPENTIN
  21. COLACE [Concomitant]
     Active Substance: DOCUSATE SODIUM
  22. NEXIUM [Concomitant]
     Active Substance: ESOMEPRAZOLE MAGNESIUM
  23. GLYCOPYRROLATE. [Concomitant]
     Active Substance: GLYCOPYRROLATE
  24. ZOFRAN [Concomitant]
     Active Substance: ONDANSETRON HYDROCHLORIDE
  25. SINGULAIR [Concomitant]
     Active Substance: MONTELUKAST SODIUM
  26. XYREM [Suspect]
     Active Substance: SODIUM OXYBATE
     Dosage: 4.5 G, BID
     Route: 048
     Dates: start: 201502
  27. AMITRIPTYLINE HCL [Concomitant]
     Active Substance: AMITRIPTYLINE
  28. LANSOPRAZOLE DR [Concomitant]
  29. MULTIVITAMIN [Concomitant]
     Active Substance: VITAMINS

REACTIONS (3)
  - Pre-existing condition improved [Unknown]
  - Small fibre neuropathy [Unknown]
  - Therapeutic response unexpected [Unknown]

NARRATIVE: CASE EVENT DATE: 201603
